FAERS Safety Report 5925942-7 (Version None)
Quarter: 2008Q4

REPORT INFORMATION
  Report Type: 
  Country: None (occurrence: None)
  Receive Date: 20081021
  Receipt Date: 20081011
  Transmission Date: 20090506
  Serious: No
  Sender: FDA-Public Use
  Company Number: US-B.I. PHARMACEUTICALS,INC./RIDGEFIELD-2008-BP-15760BP

PATIENT
  Sex: Male

DRUGS (9)
  1. SPIRIVA [Suspect]
     Indication: CHRONIC OBSTRUCTIVE PULMONARY DISEASE
     Dosage: 18MCG
     Route: 055
     Dates: start: 20080901
  2. ADVAIR DISKUS 100/50 [Concomitant]
     Indication: CHRONIC OBSTRUCTIVE PULMONARY DISEASE
     Route: 055
  3. LISINOPRIL [Concomitant]
     Indication: HYPERTENSION
     Dosage: 10MG
     Route: 048
  4. VITAMIN B [Concomitant]
     Indication: ROUTINE HEALTH MAINTENANCE
     Dosage: 100MG
     Route: 048
  5. ASCORBIC ACID [Concomitant]
     Indication: ROUTINE HEALTH MAINTENANCE
     Dosage: 500MG
     Route: 048
  6. VITAMIN D [Concomitant]
     Indication: ROUTINE HEALTH MAINTENANCE
     Dosage: 1200MG
     Route: 048
  7. CALCIUM [Concomitant]
     Indication: ROUTINE HEALTH MAINTENANCE
     Dosage: 800MG
     Route: 048
  8. COQ10 [Concomitant]
     Indication: ROUTINE HEALTH MAINTENANCE
     Dosage: 200MG
     Route: 048
  9. ASPIRIN [Concomitant]
     Dosage: 81MG
     Route: 048

REACTIONS (1)
  - DYSPNOEA [None]
